FAERS Safety Report 5806275-6 (Version None)
Quarter: 2008Q3

REPORT INFORMATION
  Report Type: 
  Country: None (occurrence: None)
  Receive Date: 20080708
  Receipt Date: 20080623
  Transmission Date: 20090109
  Serious: Yes (Death, Life-Threatening, Hospitalization)
  Sender: FDA-Public Use
  Company Number: US023642

PATIENT
  Age: 83 Year
  Sex: Male

DRUGS (2)
  1. ARSENIC TRIOXIDE [Suspect]
     Indication: ACUTE MYELOID LEUKAEMIA
     Dosage: 17 MG DAYS 1-5 AND 8-12 QD INTRAVENOUS
     Route: 042
     Dates: start: 20080312, end: 20080425
  2. CYTARABINE [Concomitant]

REACTIONS (9)
  - CHEST X-RAY ABNORMAL [None]
  - GASTROINTESTINAL HAEMORRHAGE [None]
  - GENERAL PHYSICAL HEALTH DETERIORATION [None]
  - HAEMOPTYSIS [None]
  - LUNG CONSOLIDATION [None]
  - LUNG DISORDER [None]
  - MYELODYSPLASTIC SYNDROME [None]
  - PNEUMONIA [None]
  - RENAL FAILURE [None]
